FAERS Safety Report 9623171 (Version 1)
Quarter: 2013Q4

REPORT INFORMATION
  Report Type: Spontaneous
  Country: US (occurrence: US)
  Receive Date: 20131015
  Receipt Date: 20131015
  Transmission Date: 20140711
  Serious: Yes (Other)
  Sender: FDA-Public Use
  Company Number: US-RB-058504-13

PATIENT
  Age: 67 Year
  Sex: Female

DRUGS (1)
  1. MUCINEX DM MAXIMUM STRENGTH [Suspect]
     Indication: PRODUCT USED FOR UNKNOWN INDICATION
     Dosage: TOOK RECOMMENDED DOSE, LAST USED PRODUCT ON 28-SEP-2013
     Route: 048
     Dates: start: 20130927

REACTIONS (6)
  - Haematemesis [Recovered/Resolved]
  - Dyspnoea [Recovered/Resolved]
  - Self-induced vomiting [Recovered/Resolved]
  - Tremor [Recovered/Resolved]
  - Hyperhidrosis [Recovered/Resolved]
  - Asthenia [Recovered/Resolved]
